FAERS Safety Report 21861055 (Version 5)
Quarter: 2023Q1

REPORT INFORMATION
  Report Type: Report from Study
  Country: CN (occurrence: CN)
  Receive Date: 20230113
  Receipt Date: 20230320
  Transmission Date: 20230418
  Serious: Yes (Death, Hospitalization)
  Sender: FDA-Public Use
  Company Number: CN-GLAXOSMITHKLINE-CN2023GSK000435

PATIENT

DRUGS (38)
  1. BELANTAMAB MAFODOTIN [Suspect]
     Active Substance: BELANTAMAB MAFODOTIN
     Indication: Plasma cell myeloma refractory
     Dosage: 2.5 MG/KG, Q4W (DAY 1 OF 28 DAY CYCLE)
     Route: 042
     Dates: start: 20221101
  2. POMALIDOMIDE [Suspect]
     Active Substance: POMALIDOMIDE
     Indication: Plasma cell myeloma refractory
     Dosage: 4 MG, CYC (DAY 1-21 OF 28 DAY CYCLE)
     Route: 048
     Dates: start: 20221101
  3. DEXAMETHASONE [Suspect]
     Active Substance: DEXAMETHASONE
     Indication: Plasma cell myeloma refractory
     Dosage: 40 MG, CYC (DAY 1, 8, 15, 22 OF 28 DAY CYCLE)
     Route: 048
     Dates: start: 20221101
  4. OMEPRAZOLE SODIUM [Concomitant]
     Active Substance: OMEPRAZOLE SODIUM
     Indication: Gastrointestinal disorder prophylaxis
     Dosage: 40 MG, QD (INJECTION)
     Route: 042
     Dates: start: 20221101, end: 20221101
  5. LEVOCARNITINE [Concomitant]
     Active Substance: LEVOCARNITINE
     Indication: Prophylaxis
     Dosage: 3 G, QD (INJECTION)
     Route: 042
     Dates: start: 20221101, end: 20221101
  6. ZOLEDRONIC ACID [Concomitant]
     Active Substance: ZOLEDRONIC ACID
     Indication: Bone disorder
     Dosage: 4 MG, QD
     Route: 042
     Dates: start: 20221103, end: 20221103
  7. ACETAMINOPHEN\CODEINE PHOSPHATE [Concomitant]
     Active Substance: ACETAMINOPHEN\CODEINE PHOSPHATE
     Indication: Pain
     Dosage: 0.5 G, BID
     Route: 048
     Dates: start: 20221103, end: 20221117
  8. ACETAMINOPHEN\CODEINE PHOSPHATE [Concomitant]
     Active Substance: ACETAMINOPHEN\CODEINE PHOSPHATE
     Indication: Back pain
  9. RABEPRAZOLE SODIUM [Concomitant]
     Active Substance: RABEPRAZOLE SODIUM
     Indication: Gastrointestinal disorder prophylaxis
     Dosage: 20 MG, QD
     Route: 048
     Dates: start: 20221104, end: 20221109
  10. NICORANDIL [Concomitant]
     Active Substance: NICORANDIL
     Indication: Coronary artery disease
     Dosage: 5 MG, TID
     Route: 048
     Dates: start: 20221110, end: 20221117
  11. NICORANDIL [Concomitant]
     Active Substance: NICORANDIL
     Dosage: 5 MG, TID
     Route: 048
     Dates: start: 20221201
  12. METOPROLOL SUCCINATE SUSTAINED RELEASE [Concomitant]
     Indication: Coronary artery disease
     Dosage: 23.75 MG, QD
     Route: 048
     Dates: start: 20221110
  13. METOPROLOL SUCCINATE SUSTAINED RELEASE [Concomitant]
     Dosage: 23.75 MG, QD
     Route: 048
     Dates: start: 20221110, end: 20221117
  14. METOPROLOL SUCCINATE SUSTAINED RELEASE [Concomitant]
     Dosage: 23.75 MG, QD
     Route: 048
     Dates: start: 20221201
  15. ASPIRIN [Concomitant]
     Active Substance: ASPIRIN
     Indication: Coronary artery disease
     Dosage: 100 MG, TID
     Route: 048
     Dates: start: 20221110, end: 20221117
  16. ASPIRIN [Concomitant]
     Active Substance: ASPIRIN
     Dosage: 100 MG, TID
     Route: 048
     Dates: start: 20221201
  17. INSULIN ASPART [Concomitant]
     Active Substance: INSULIN ASPART
     Indication: Diabetes mellitus management
     Dosage: 8 IU, QD (INJECTION)
     Route: 058
     Dates: start: 2017, end: 20221110
  18. INSULIN ASPART [Concomitant]
     Active Substance: INSULIN ASPART
     Dosage: 10 IU, QD (INJECTION)
     Route: 058
     Dates: start: 20221110
  19. ATORVASTATIN CALCIUM [Concomitant]
     Active Substance: ATORVASTATIN CALCIUM
     Indication: Coronary artery disease
     Dosage: 20 MG, QD
     Route: 048
     Dates: start: 20221110, end: 20221117
  20. ATORVASTATIN CALCIUM [Concomitant]
     Active Substance: ATORVASTATIN CALCIUM
     Dosage: 20 MG, QD
     Route: 048
     Dates: start: 20221201
  21. HYALURONATE SODIUM [Concomitant]
     Active Substance: HYALURONATE SODIUM
     Indication: Eye disorder
     Dosage: UNK UNK, QID
     Route: 061
     Dates: start: 20221101
  22. HEPARIN SODIUM [Concomitant]
     Active Substance: HEPARIN SODIUM
     Indication: Venous thrombosis
     Dosage: 1 ML, QD
     Route: 058
     Dates: start: 20230107, end: 20230107
  23. HEPARIN SODIUM [Concomitant]
     Active Substance: HEPARIN SODIUM
     Dosage: 1 ML, BID
     Route: 058
     Dates: start: 20230107, end: 20230109
  24. SANQI PANAX NOTOGINSENG FOR INJECTION [Concomitant]
     Indication: Venous thrombosis
     Dosage: 400 MG, QD
     Route: 042
     Dates: start: 20230107, end: 20230109
  25. FAMOTIDINE [Concomitant]
     Active Substance: FAMOTIDINE
     Indication: Gastrointestinal disorder prophylaxis
     Dosage: 4 MG, BID
     Route: 042
     Dates: start: 20230109, end: 20230109
  26. MEDIUM AND LONG CHAIN FAT EMULSION [Concomitant]
     Indication: Nutritional supplementation
     Dosage: 12.5 G, QD
     Route: 042
     Dates: start: 20230109, end: 20230109
  27. POTASSIUM CHLORIDE [Concomitant]
     Active Substance: POTASSIUM CHLORIDE
     Indication: Nutritional supplementation
     Dosage: 1.5 G, QD
     Route: 042
     Dates: start: 20230109, end: 20230109
  28. COMPOUND DANSHEN DRIPPING PILL [Concomitant]
     Indication: Venous thrombosis
     Dosage: 27 MG, SINGLE
     Route: 048
     Dates: start: 20230106, end: 20230106
  29. XINKESHU [Concomitant]
     Indication: Venous thrombosis
     Dosage: 0.31 G, SINGLE
     Route: 048
     Dates: start: 20230106, end: 20230106
  30. INSULIN LISPRO [Concomitant]
     Active Substance: INSULIN LISPRO
     Indication: Type 2 diabetes mellitus
     Dosage: 300 UNITS, SINGLE
     Route: 058
     Dates: start: 20230106, end: 20230106
  31. INSULIN GLARGINE [Concomitant]
     Active Substance: INSULIN GLARGINE
     Indication: Type 2 diabetes mellitus
     Dosage: 300 UNITS, SINGLE
     Route: 058
     Dates: start: 20230106, end: 20230106
  32. CALCIUM DOBESILATE [Concomitant]
     Active Substance: CALCIUM DOBESILATE
     Indication: Mineral supplementation
     Dosage: 1 G
     Dates: start: 20230107, end: 20230107
  33. HERBALS [Concomitant]
     Active Substance: HERBALS
     Indication: Venous thrombosis
     Dosage: 0.15 G, SINGLE
     Route: 048
     Dates: start: 20230107, end: 20230107
  34. RIVAROXABAN [Concomitant]
     Active Substance: RIVAROXABAN
     Indication: Venous thrombosis
     Dosage: 15 MG, SINGLE
     Route: 048
     Dates: start: 20230107, end: 20230107
  35. FUROSEMIDE [Concomitant]
     Active Substance: FUROSEMIDE
     Indication: Blood pressure increased
     Dosage: 20 MG, SINGLE
     Route: 048
     Dates: start: 20230108, end: 20230108
  36. SPIRONOLACTONE [Concomitant]
     Active Substance: SPIRONOLACTONE
     Indication: Blood pressure increased
     Dosage: 20 MG, SINGLE
     Route: 048
     Dates: start: 20230108, end: 20230108
  37. FUROSEMIDE [Concomitant]
     Active Substance: FUROSEMIDE
     Indication: Diuretic therapy
     Dosage: 20 MG, SINGLE
     Route: 042
     Dates: start: 20230109, end: 20230109
  38. DESLANOSIDE [Concomitant]
     Active Substance: DESLANOSIDE
     Indication: Arrhythmia prophylaxis
     Dosage: 0.4 MG, SINGLE
     Dates: start: 20230109, end: 20230109

REACTIONS (1)
  - Pneumonia [Fatal]

NARRATIVE: CASE EVENT DATE: 20221224
